FAERS Safety Report 16168485 (Version 1)
Quarter: 2019Q2

REPORT INFORMATION
  Report Type: Spontaneous
  Country: US (occurrence: US)
  Receive Date: 20190304
  Receipt Date: 20190304
  Transmission Date: 20190711
  Serious: No
  Sender: FDA-Public Use
  Company Number: None

PATIENT
  Age: 58 Year
  Sex: Female

DRUGS (1)
  1. FORTEO [Suspect]
     Active Substance: TERIPARATIDE
     Dates: start: 201801

REACTIONS (3)
  - Injection site haemorrhage [None]
  - Weight decreased [None]
  - Needle issue [None]

NARRATIVE: CASE EVENT DATE: 20190304
